FAERS Safety Report 25469073 (Version 2)
Quarter: 2025Q2

REPORT INFORMATION
  Report Type: Spontaneous
  Country: US (occurrence: US)
  Receive Date: 20250623
  Receipt Date: 20250624
  Transmission Date: 20250716
  Serious: Yes (Hospitalization, Other)
  Sender: PURDUE
  Company Number: US-PURDUE PHARMA-USA-2025-0318384

PATIENT
  Age: 18 Year
  Sex: Female

DRUGS (1)
  1. OXYCONTIN [Suspect]
     Active Substance: OXYCODONE HYDROCHLORIDE
     Indication: Tooth injury
     Route: 048
     Dates: start: 20091212

REACTIONS (6)
  - Overdose [Unknown]
  - Drug dependence [Unknown]
  - Drug use disorder [Unknown]
  - Impaired quality of life [Unknown]
  - Emotional distress [Unknown]
  - Pain [Unknown]

NARRATIVE: CASE EVENT DATE: 20091201
